FAERS Safety Report 9478099 (Version 1)
Quarter: 2013Q3

REPORT INFORMATION
  Report Type: Spontaneous
  Country: US (occurrence: US)
  Receive Date: 20130827
  Receipt Date: 20130827
  Transmission Date: 20140515
  Serious: Yes (Hospitalization)
  Sender: FDA-Public Use
  Company Number: US-BAYER-2013-102940

PATIENT
  Age: 38 Year
  Sex: Female
  Weight: 51.25 kg

DRUGS (9)
  1. YAZ [Suspect]
  2. METHOTREXATE [Concomitant]
     Indication: RHEUMATOID ARTHRITIS
  3. PREDNISONE [Concomitant]
     Indication: RHEUMATOID ARTHRITIS
  4. ALPRAZOLAM [Concomitant]
  5. FOLIC ACID [Concomitant]
  6. ADDERALL [Concomitant]
  7. REMERON [Concomitant]
  8. ENBREL [Concomitant]
  9. CHANTIX [Concomitant]

REACTIONS (1)
  - Cerebrovascular accident [None]
